FAERS Safety Report 21981490 (Version 2)
Quarter: 2023Q1

REPORT INFORMATION
  Report Type: Spontaneous
  Country: DE (occurrence: DE)
  Receive Date: 20230211
  Receipt Date: 20230223
  Transmission Date: 20230418
  Serious: Yes (Hospitalization, Other)
  Sender: FDA-Public Use
  Company Number: None

PATIENT
  Age: 69 Year
  Sex: Male
  Weight: 72.5 kg

DRUGS (14)
  1. FLUVASTATIN [Suspect]
     Active Substance: FLUVASTATIN SODIUM
     Indication: Product used for unknown indication
     Dosage: 20 MG, QOD
     Route: 065
     Dates: start: 20221024, end: 20221117
  2. BISOPROLOL [Concomitant]
     Active Substance: BISOPROLOL
     Indication: Product used for unknown indication
     Dosage: 1.25 MG, QD (1-0-0)
     Route: 065
     Dates: start: 20191122
  3. REPATHA [Concomitant]
     Active Substance: EVOLOCUMAB
     Indication: Product used for unknown indication
     Dosage: EVERY 14 DAYS (ALLE 14 TAGE)
     Route: 065
     Dates: start: 20211018
  4. CANDESARTAN [Concomitant]
     Active Substance: CANDESARTAN
     Indication: Product used for unknown indication
     Dosage: 20 MG, BID (0-1-1)
     Route: 065
     Dates: start: 20191122
  5. LERCANIDIPINE [Concomitant]
     Active Substance: LERCANIDIPINE
     Indication: Product used for unknown indication
     Dosage: 10 MG, QD (1-0-0)
     Route: 065
     Dates: start: 20191122
  6. LERCANIDIPINE [Concomitant]
     Active Substance: LERCANIDIPINE
     Dosage: 15 MG, QD (1-0-0-1/2)
     Route: 065
     Dates: start: 20191122
  7. PANTOPRAZOLE SODIUM [Concomitant]
     Active Substance: PANTOPRAZOLE SODIUM
     Indication: Product used for unknown indication
     Dosage: 20 MG, QD (1-0-0)
     Route: 065
  8. PANTOPRAZOLE SODIUM [Concomitant]
     Active Substance: PANTOPRAZOLE SODIUM
     Dosage: 40 MG, QD
     Route: 065
  9. ASPIRIN [Concomitant]
     Active Substance: ASPIRIN
     Indication: Product used for unknown indication
     Dosage: 100 MG, BID (0-1-1)
     Route: 065
     Dates: start: 20191122
  10. VITAMIN B12 [Concomitant]
     Active Substance: CYANOCOBALAMIN
     Indication: Iron deficiency
     Dosage: QMO (1X MON)
     Route: 065
  11. VITAMIN B12 [Concomitant]
     Active Substance: CYANOCOBALAMIN
     Dosage: UNK, QMO (1X MON S.C.ZULETZT VOR 8D)
     Route: 058
  12. METAMIZOLE [Concomitant]
     Active Substance: METAMIZOLE
     Indication: Product used for unknown indication
     Dosage: 500 MG, Q8H (1-1-1 ONLY IN WEEK 28 2022)
     Route: 065
     Dates: start: 20220711, end: 20220718
  13. FERRO SANOL COMP [Concomitant]
     Indication: Iron deficiency
     Dosage: 30 MG, Q8H (1-1-1), 30MG/0.5MG/2.5?G
     Route: 065
  14. FERRO SANOL COMP [Concomitant]
     Indication: Vitamin B12 deficiency

REACTIONS (21)
  - Seizure [Recovered/Resolved]
  - Monoparesis [Unknown]
  - Bone pain [Unknown]
  - Dizziness [Unknown]
  - Sleep disorder [Unknown]
  - Dysstasia [Unknown]
  - Muscular weakness [Unknown]
  - Epilepsy [Unknown]
  - Tongue biting [Unknown]
  - Headache [Unknown]
  - Middle insomnia [Unknown]
  - Pain in extremity [Unknown]
  - Hemiparesis [Unknown]
  - Malaise [Unknown]
  - Blood creatine phosphokinase increased [Unknown]
  - Arthralgia [Unknown]
  - Muscle spasms [Unknown]
  - Fear of disease [Unknown]
  - Adverse reaction [Unknown]
  - Nausea [Unknown]
  - Myalgia [Unknown]

NARRATIVE: CASE EVENT DATE: 20221101
